FAERS Safety Report 10525241 (Version 1)
Quarter: 2014Q4

REPORT INFORMATION
  Report Type: Spontaneous
  Country: US (occurrence: US)
  Receive Date: 20141017
  Receipt Date: 20141017
  Transmission Date: 20150528
  Serious: Yes (Other)
  Sender: FDA-Public Use
  Company Number: US-TEVA-515279USA

PATIENT
  Sex: Female

DRUGS (1)
  1. COPAXONE [Suspect]
     Active Substance: GLATIRAMER ACETATE
     Indication: MULTIPLE SCLEROSIS

REACTIONS (9)
  - Injection site reaction [Unknown]
  - Dyspnoea [Unknown]
  - Confusional state [Unknown]
  - Flushing [Unknown]
  - Oedema peripheral [Unknown]
  - Swelling face [Unknown]
  - Heart rate increased [Unknown]
  - Dizziness [Unknown]
  - Anaphylactic reaction [Unknown]

NARRATIVE: CASE EVENT DATE: 19970817
